FAERS Safety Report 9905503 (Version 1)
Quarter: 2014Q1

REPORT INFORMATION
  Report Type: Spontaneous
  Country: US (occurrence: US)
  Receive Date: 20140218
  Receipt Date: 20140218
  Transmission Date: 20141002
  Serious: Yes (Hospitalization)
  Sender: FDA-Public Use
  Company Number: US-GLAXOSMITHKLINE-A1060495A

PATIENT
  Age: 54 Year
  Sex: Female

DRUGS (18)
  1. ADVAIR HFA [Suspect]
     Indication: ASTHMA
     Dosage: 1PUFF TWICE PER DAY
     Route: 055
     Dates: start: 2008
  2. MULTIVITAMIN [Concomitant]
  3. ALBUTEROL NEBULIZER [Concomitant]
  4. AMLODIPINE [Concomitant]
  5. ASPIRIN [Concomitant]
  6. ATORVASTATIN [Concomitant]
  7. CHLORTHALIDONE [Concomitant]
  8. CLOPIDOGREL [Concomitant]
  9. GABAPENTIN [Concomitant]
  10. HUMALOG [Concomitant]
  11. PROAIR HFA [Concomitant]
  12. LANTUS [Concomitant]
  13. LUMIGAN [Concomitant]
  14. MONTELUKAST [Concomitant]
  15. OMEPRAZOLE [Concomitant]
  16. ZOLPIDEM [Concomitant]
  17. FLUTICASONE NASAL SPRAY [Concomitant]
  18. FEXOFENADINE [Concomitant]

REACTIONS (3)
  - Investigation [Recovering/Resolving]
  - Asthma [Recovering/Resolving]
  - Blood glucose increased [Recovering/Resolving]
